FAERS Safety Report 9074805 (Version 1)
Quarter: 2013Q1

REPORT INFORMATION
  Report Type: Spontaneous
  Country: US (occurrence: US)
  Receive Date: 20130129
  Receipt Date: 20130129
  Transmission Date: 20140127
  Serious: Yes (Hospitalization, Disabling)
  Sender: FDA-Public Use
  Company Number: US-009507513-1301USA012502

PATIENT
  Age: 55 Year
  Sex: Male

DRUGS (2)
  1. JANUMET [Suspect]
     Indication: TYPE 2 DIABETES MELLITUS
     Dosage: 50/1000 MG, UNK
     Route: 048
     Dates: end: 2013
  2. JANUVIA [Suspect]
     Route: 048

REACTIONS (2)
  - Pancreatitis [Recovered/Resolved]
  - Discomfort [Recovered/Resolved]
